FAERS Safety Report 9897493 (Version 2)
Quarter: 2014Q1

REPORT INFORMATION
  Report Type: Spontaneous
  Country: US (occurrence: US)
  Receive Date: 20140214
  Receipt Date: 20140227
  Transmission Date: 20141002
  Serious: Yes (Other)
  Sender: FDA-Public Use
  Company Number: US-BAYER-2014-023711

PATIENT
  Age: 66 Year
  Sex: Male

DRUGS (4)
  1. XOFIGO [Suspect]
     Indication: HORMONE-REFRACTORY PROSTATE CANCER
     Dosage: 133 MICROCI
     Dates: start: 20130709, end: 20130709
  2. XOFIGO [Suspect]
     Indication: METASTASES TO BONE
     Dosage: 128.5 MICROCI
     Dates: start: 20130806, end: 20130806
  3. XOFIGO [Suspect]
     Indication: HORMONE-REFRACTORY PROSTATE CANCER
     Dosage: 123.95 MICROCI
     Dates: start: 20130904, end: 20130904
  4. XOFIGO [Suspect]
     Indication: HORMONE-REFRACTORY PROSTATE CANCER
     Dosage: 122.7 MICROCI
     Dates: start: 20131111, end: 20131111

REACTIONS (2)
  - Pathological fracture [None]
  - Anaemia [None]
